FAERS Safety Report 17834647 (Version 2)
Quarter: 2021Q1

REPORT INFORMATION
  Report Type: Spontaneous
  Country: FR (occurrence: FR)
  Receive Date: 20200528
  Receipt Date: 20210108
  Transmission Date: 20210419
  Serious: Yes (Death, Hospitalization)
  Sender: FDA-Public Use
  Company Number: FR-CLINIGEN GROUP PLC/ CLINIGEN HEALTHCARE LTD-FR-CLGN-20-0013040

PATIENT
  Age: 20 Year
  Sex: Male
  Weight: 49 kg

DRUGS (6)
  1. CRESEMBA [Suspect]
     Active Substance: ISAVUCONAZONIUM SULFATE
     Indication: MUCORMYCOSIS
     Route: 048
     Dates: end: 20200429
  2. PIPERACILLINE SODIQUE [Suspect]
     Active Substance: PIPERACILLIN
     Indication: VASCULAR DEVICE INFECTION
     Route: 041
     Dates: start: 20200418, end: 20200504
  3. KIDROLASE [Suspect]
     Active Substance: ASPARAGINASE
     Indication: ACUTE LYMPHOCYTIC LEUKAEMIA
     Route: 042
     Dates: start: 20200411, end: 20200421
  4. FOSCAVIR [Suspect]
     Active Substance: FOSCARNET SODIUM
     Indication: HERPES SIMPLEX
     Route: 042
     Dates: start: 20200422, end: 20200426
  5. VANCOMYCINE [Suspect]
     Active Substance: VANCOMYCIN
     Indication: VASCULAR DEVICE INFECTION
     Route: 042
     Dates: start: 20200424, end: 20200427
  6. LEVOFLOXACINE [Suspect]
     Active Substance: LEVOFLOXACIN
     Indication: VASCULAR DEVICE INFECTION
     Dates: start: 20200421, end: 20200429

REACTIONS (4)
  - Blood bilirubin increased [Recovered/Resolved]
  - Cell death [Recovering/Resolving]
  - Gamma-glutamyltransferase increased [Recovering/Resolving]
  - Blood alkaline phosphatase increased [Recovering/Resolving]

NARRATIVE: CASE EVENT DATE: 20200425
